FAERS Safety Report 9776026 (Version 2)
Quarter: 2013Q4

REPORT INFORMATION
  Report Type: Spontaneous
  Country: US (occurrence: US)
  Receive Date: 20131220
  Receipt Date: 20131220
  Transmission Date: 20140711
  Serious: No
  Sender: FDA-Public Use
  Company Number: US-MYLANLABS-2013S1003378

PATIENT
  Age: 49 Year
  Sex: Male
  Weight: 79.38 kg

DRUGS (4)
  1. DOXYCYCLINE TABLETS [Suspect]
     Indication: PROSTATITIS
     Route: 048
     Dates: start: 2012, end: 2012
  2. FINACEA [Concomitant]
     Route: 061
  3. CRESTOR [Concomitant]
     Indication: BLOOD CHOLESTEROL INCREASED
     Route: 048
  4. DERMATOLOGICALS [Concomitant]
     Dosage: PROMISEB TOPICAL CREAM
     Route: 061

REACTIONS (1)
  - Candida infection [Recovered/Resolved]
